FAERS Safety Report 18650279 (Version 1)
Quarter: 2020Q4

REPORT INFORMATION
  Report Type: Spontaneous
  Country: CN (occurrence: CN)
  Receive Date: 20201222
  Receipt Date: 20201222
  Transmission Date: 20210114
  Serious: Yes (Hospitalization)
  Sender: FDA-Public Use
  Company Number: CN-GILEAD-2020-0509801

PATIENT
  Age: 29 Year
  Sex: Male

DRUGS (9)
  1. GLUTATHIONE [Concomitant]
     Active Substance: GLUTATHIONE
  2. EPCLUSA [Suspect]
     Active Substance: SOFOSBUVIR\VELPATASVIR
     Indication: HEPATITIS C
     Dosage: 1 DOSAGE FORM, QD
     Route: 048
     Dates: start: 20201201, end: 20201211
  3. KALETRA [Suspect]
     Active Substance: LOPINAVIR\RITONAVIR
     Indication: HIV INFECTION
     Dosage: UNK
     Route: 065
     Dates: start: 201908, end: 20201026
  4. KALETRA [Suspect]
     Active Substance: LOPINAVIR\RITONAVIR
     Dosage: 500 MG, BID
     Route: 048
     Dates: start: 20201105, end: 20201208
  5. LAMIVUDINE + TENOFOVIR [Concomitant]
  6. SILYBIN [Concomitant]
  7. POLYENE PHOSPHATIDYLCHOLINE [Concomitant]
     Active Substance: PHOSPHOLIPID
  8. GLYCYRRHIZIN [GLYCYRRHIZIC ACID] [Concomitant]
     Active Substance: GLYCYRRHIZIN
  9. BUDISULFONIC ACID [Concomitant]

REACTIONS (1)
  - Hepatic function abnormal [Recovering/Resolving]

NARRATIVE: CASE EVENT DATE: 20201203
